FAERS Safety Report 9296330 (Version 1)
Quarter: 2013Q2

REPORT INFORMATION
  Report Type: Spontaneous
  Country: IT (occurrence: IT)
  Receive Date: 20130517
  Receipt Date: 20130517
  Transmission Date: 20140414
  Serious: Yes (Other)
  Sender: FDA-Public Use
  Company Number: IT-BAYER-2013-061679

PATIENT
  Age: 34 Year
  Sex: Female

DRUGS (1)
  1. ACETYLSALICYLIC ACID({=100 MG) [Suspect]
     Indication: PROPHYLAXIS
     Dosage: 100 MG DAILY

REACTIONS (3)
  - Exposure during pregnancy [None]
  - Premature baby [None]
  - Caesarean section [None]
